FAERS Safety Report 8409562 (Version 2)
Quarter: 2014Q1

REPORT INFORMATION
  Report Type: Spontaneous
  Country: US (occurrence: US)
  Receive Date: 20120216
  Receipt Date: 20140120
  Transmission Date: 20141002
  Serious: Yes (Other)
  Sender: FDA-Public Use
  Company Number: US-ROCHE-784276

PATIENT
  Age: 37 Year
  Sex: Male
  Weight: 59.02 kg

DRUGS (2)
  1. ACCUTANE [Suspect]
     Indication: ACNE
     Route: 065
     Dates: start: 1988, end: 1989
  2. ACCUTANE [Suspect]
     Route: 065

REACTIONS (6)
  - Inflammatory bowel disease [Unknown]
  - Emotional distress [Unknown]
  - Colitis ulcerative [Unknown]
  - Depression [Unknown]
  - Abdominal abscess [Unknown]
  - Irritable bowel syndrome [Unknown]
